APPROVED DRUG PRODUCT: RISPERIDONE
Active Ingredient: RISPERIDONE
Strength: 25MG/VIAL
Dosage Form/Route: POWDER;INTRAMUSCULAR
Application: A211220 | Product #001 | TE Code: AB
Applicant: NANOMI BV
Approved: Sep 2, 2025 | RLD: No | RS: No | Type: RX

EXCLUSIVITY:
Code: CGT | Date: May 12, 2026